APPROVED DRUG PRODUCT: TERFONYL
Active Ingredient: TRISULFAPYRIMIDINES (SULFADIAZINE;SULFAMERAZINE;SULFAMETHAZINE)
Strength: 167MG;167MG;167MG
Dosage Form/Route: TABLET;ORAL
Application: N006904 | Product #001
Applicant: BRISTOL MYERS SQUIBB CO
Approved: Approved Prior to Jan 1, 1982 | RLD: No | RS: No | Type: DISCN